FAERS Safety Report 6993099-X (Version None)
Quarter: 2010Q3

REPORT INFORMATION
  Report Type: 
  Country: None (occurrence: None)
  Receive Date: 20100917
  Receipt Date: 20091117
  Transmission Date: 20110219
  Serious: No
  Sender: FDA-Public Use
  Company Number: US-ASTRAZENECA-2008UW27421

PATIENT
  Sex: Female
  Weight: 94.8 kg

DRUGS (3)
  1. SEROQUEL [Suspect]
     Indication: DEPRESSION
     Dosage: 50 -300 MG
     Route: 048
     Dates: start: 20011001, end: 20081201
  2. ZOLOFT [Concomitant]
  3. TRAZODONE HCL [Concomitant]
     Dosage: 100 MG

REACTIONS (2)
  - DIABETES MELLITUS [None]
  - ROTATOR CUFF SYNDROME [None]
